FAERS Safety Report 18330405 (Version 1)
Quarter: 2020Q3

REPORT INFORMATION
  Report Type: Spontaneous
  Country: US (occurrence: US)
  Receive Date: 20200930
  Receipt Date: 20200930
  Transmission Date: 20201103
  Serious: No
  Sender: FDA-Public Use
  Company Number: US-BIOGEN-2020BI00917317

PATIENT
  Sex: Female
  Weight: 72.64 kg

DRUGS (5)
  1. TECFIDERA [Suspect]
     Active Substance: DIMETHYL FUMARATE
     Indication: MULTIPLE SCLEROSIS
     Dosage: STARTING DOSE
     Route: 048
     Dates: start: 20170706
  2. TECFIDERA [Suspect]
     Active Substance: DIMETHYL FUMARATE
     Route: 065
     Dates: start: 20180928
  3. TECFIDERA [Suspect]
     Active Substance: DIMETHYL FUMARATE
     Dosage: MAINTENANCE DOSE
     Route: 048
  4. TECFIDERA [Suspect]
     Active Substance: DIMETHYL FUMARATE
     Dosage: STARTING DOSE
     Route: 048
     Dates: start: 20180928
  5. TECFIDERA [Suspect]
     Active Substance: DIMETHYL FUMARATE
     Dosage: MAINTENANCE DOSE
     Route: 048
     Dates: end: 20170908

REACTIONS (16)
  - Eyelid ptosis [Not Recovered/Not Resolved]
  - Vitamin D decreased [Unknown]
  - Pain [Unknown]
  - Arthralgia [Unknown]
  - Hypoaesthesia [Unknown]
  - Paraesthesia [Unknown]
  - Joint stiffness [Unknown]
  - Back pain [Unknown]
  - Essential hypertension [Unknown]
  - Urinary incontinence [Unknown]
  - Abdominal discomfort [Unknown]
  - Fatigue [Unknown]
  - Muscle spasms [Unknown]
  - Asthenia [Unknown]
  - Pollakiuria [Unknown]
  - Vision blurred [Unknown]
